FAERS Safety Report 10033190 (Version 1)
Quarter: 2014Q1

REPORT INFORMATION
  Report Type: Spontaneous
  Country: BR (occurrence: BR)
  Receive Date: 20140324
  Receipt Date: 20140324
  Transmission Date: 20141002
  Serious: Yes (Death)
  Sender: FDA-Public Use
  Company Number: BR-BIOMARINAP-BR-2014-102813

PATIENT
  Age: 23 Year
  Sex: Female
  Weight: 22 kg

DRUGS (1)
  1. NAGLAZYME [Suspect]
     Indication: MUCOPOLYSACCHARIDOSIS VI
     Dosage: 20 MG, QW
     Route: 041
     Dates: start: 2010

REACTIONS (3)
  - Endotracheal intubation complication [Fatal]
  - Pulmonary hypertension [Unknown]
  - Cardiac disorder [Unknown]
